FAERS Safety Report 10254768 (Version 2)
Quarter: 2014Q2

REPORT INFORMATION
  Report Type: Spontaneous
  Country: US (occurrence: US)
  Receive Date: 20140624
  Receipt Date: 20140624
  Transmission Date: 20141212
  Serious: No
  Sender: FDA-Public Use
  Company Number: US-AMGEN-USASP2014043640

PATIENT
  Age: 50 Year
  Sex: Female

DRUGS (6)
  1. ENBREL [Suspect]
     Indication: PSORIASIS
     Dosage: 50 MG, QOW
     Route: 058
     Dates: start: 201403
  2. METFORMIN [Concomitant]
     Indication: DIABETES MELLITUS
     Dosage: 80 MG, TID
     Route: 048
  3. CELEXA                             /00582602/ [Concomitant]
     Indication: DEPRESSION
     Dosage: 20 MG, QD
     Route: 048
  4. ZOCOR [Concomitant]
     Indication: BLOOD CHOLESTEROL INCREASED
     Dosage: 20 MG, QHS
     Route: 048
  5. LANTUS [Concomitant]
     Indication: DIABETES MELLITUS
     Dosage: 60 UNIT, QHS
  6. CALCIUM + VITAMIN D                /01483701/ [Concomitant]
     Indication: BONE DISORDER
     Dosage: 1 UNK, QD
     Route: 048

REACTIONS (5)
  - Psoriasis [Not Recovered/Not Resolved]
  - Injection site swelling [Unknown]
  - Injection site pruritus [Unknown]
  - Injection site erythema [Unknown]
  - Injection site reaction [Unknown]
